FAERS Safety Report 20256107 (Version 2)
Quarter: 2022Q1

REPORT INFORMATION
  Report Type: Spontaneous
  Country: US (occurrence: US)
  Receive Date: 20211230
  Receipt Date: 20220111
  Transmission Date: 20220424
  Serious: No
  Sender: FDA-Public Use
  Company Number: US-CURIUM-2021000823

PATIENT
  Age: 80 Year
  Sex: Female

DRUGS (2)
  1. TECHNESCAN HDP [Suspect]
     Active Substance: TECHNETIUM TC-99M OXIDRONATE
     Route: 065
     Dates: start: 20211122, end: 20211122
  2. TECHNETIUM TC-99M SODIUM PERTECHNETATE [Suspect]
     Active Substance: TECHNETIUM TC-99M SODIUM PERTECHNETATE
     Dosage: TOTAL
     Route: 065
     Dates: start: 20211122, end: 20211122

REACTIONS (2)
  - Bone scan abnormal [Recovered/Resolved]
  - Product preparation issue [Recovered/Resolved]

NARRATIVE: CASE EVENT DATE: 20211122
